FAERS Safety Report 9054759 (Version 3)
Quarter: 2013Q1

REPORT INFORMATION
  Report Type: Spontaneous
  Country: NO (occurrence: NO)
  Receive Date: 20130208
  Receipt Date: 20130306
  Transmission Date: 20140127
  Serious: Yes (Hospitalization, Other)
  Sender: FDA-Public Use
  Company Number: NO-PFIZER INC-2013045866

PATIENT
  Age: 72 Year
  Sex: Female

DRUGS (14)
  1. ARTHROTEC [Suspect]
     Indication: OSTEOARTHRITIS
     Dosage: 1 DF, 1X/DAY
     Route: 048
     Dates: start: 20130131, end: 20130131
  2. ARTHROTEC [Suspect]
     Dosage: 2 DF, 2X/DAY
     Route: 048
     Dates: start: 20130201, end: 20130203
  3. SOBRIL [Concomitant]
     Indication: ANXIETY
     Dosage: 15 MG, 3X/DAY
  4. STILNOCT [Concomitant]
     Indication: SLEEP DISORDER
     Dosage: 15 MG, 1X/DAY
  5. NEXIUM [Concomitant]
     Indication: OESOPHAGEAL DISORDER
     Dosage: 20 MG, 1X/DAY
  6. METFORMIN [Concomitant]
     Dosage: 500 MG, 3X/DAY
  7. AMARYL [Concomitant]
     Dosage: 2 MG, 1X/DAY
  8. CIPRALEX [Concomitant]
     Dosage: 10 MG, 1X/DAY
  9. PREDNISOLONE [Concomitant]
     Dosage: 2.5 MG, 1X/DAY
  10. PARALGIN FORTE [Concomitant]
     Dosage: 2 DF, 3X/DAY
  11. DUPHALAC [Concomitant]
     Dosage: 15 ML, 2X/DAY
  12. VENTOLINE [Concomitant]
     Dosage: 2.5 MG, 1 INHALATION UP TO 4X/DAY
  13. SERETIDE [Concomitant]
     Dosage: UNK
  14. CETIRIZINE [Concomitant]
     Indication: PRURITUS
     Dosage: 10 MG, UP TO 3X/DAY

REACTIONS (26)
  - Hypoaesthesia [Recovered/Resolved]
  - Paralysis [Unknown]
  - Dizziness [Unknown]
  - Diarrhoea [Recovered/Resolved]
  - Amnesia [Not Recovered/Not Resolved]
  - Ear pain [Unknown]
  - Chills [Unknown]
  - Asthenia [Unknown]
  - Visual impairment [Unknown]
  - Incontinence [Unknown]
  - Hallucination [Unknown]
  - Flatulence [Unknown]
  - Fall [Unknown]
  - Eye disorder [Unknown]
  - Disturbance in attention [Unknown]
  - Viral infection [Unknown]
  - Anxiety [Unknown]
  - Confusional state [Unknown]
  - Irritability [Unknown]
  - Strabismus [Unknown]
  - Nightmare [Unknown]
  - Tremor [Unknown]
  - Headache [Unknown]
  - Abdominal pain upper [Unknown]
  - Cerebellar syndrome [Unknown]
  - Movement disorder [Unknown]
